FAERS Safety Report 5457165-2 (Version None)
Quarter: 2007Q3

REPORT INFORMATION
  Report Type: 
  Country: None (occurrence: None)
  Receive Date: 20070918
  Receipt Date: 20061228
  Transmission Date: 20080115
  Serious: No
  Sender: FDA-Public Use
  Company Number: US-ASTRAZENECA-2006UW28656

PATIENT
  Age: 36 Year
  Sex: Female
  Weight: 62.6 kg

DRUGS (2)
  1. SEROQUEL [Suspect]
     Indication: MAJOR DEPRESSION
     Route: 048
  2. SYNTHROID [Concomitant]

REACTIONS (4)
  - DRY MOUTH [None]
  - FEELING DRUNK [None]
  - SOMNOLENCE [None]
  - VISUAL DISTURBANCE [None]
